FAERS Safety Report 7063414-X (Version None)
Quarter: 2010Q4

REPORT INFORMATION
  Report Type: 
  Country: None (occurrence: None)
  Receive Date: 20101026
  Receipt Date: 20091203
  Transmission Date: 20110411
  Serious: No
  Sender: FDA-Public Use
  Company Number: US-ABBOTT-09P-163-0612066-00

PATIENT
  Sex: Female
  Weight: 90.8 kg

DRUGS (1)
  1. LUPRON DEPOT [Suspect]
     Indication: UTERINE LEIOMYOMA
     Dates: start: 20090701, end: 20090901

REACTIONS (3)
  - HEADACHE [None]
  - HOT FLUSH [None]
  - IRRITABILITY [None]
